FAERS Safety Report 13256024 (Version 2)
Quarter: 2017Q1

REPORT INFORMATION
  Report Type: Spontaneous
  Country: OM (occurrence: OM)
  Receive Date: 20170221
  Receipt Date: 20170307
  Transmission Date: 20170428
  Serious: Yes (Death, Life-Threatening, Hospitalization, Other)
  Sender: FDA-Public Use
  Company Number: OM-PFIZER INC-2017068244

PATIENT
  Age: 55 Year
  Sex: Male

DRUGS (6)
  1. COLISTIN [Suspect]
     Active Substance: COLISTIN
     Indication: BURKHOLDERIA PSEUDOMALLEI INFECTION
     Dosage: UNK
  2. PIPERACILLIN/TAZOBACTAM [Suspect]
     Active Substance: PIPERACILLIN SODIUM\TAZOBACTAM SODIUM
     Indication: BURKHOLDERIA PSEUDOMALLEI INFECTION
     Dosage: 4.5 G, 3X/DAY
  3. TIGECYCLINE. [Suspect]
     Active Substance: TIGECYCLINE
     Indication: BURKHOLDERIA PSEUDOMALLEI INFECTION
     Dosage: UNK
  4. MEROPENEM. [Suspect]
     Active Substance: MEROPENEM
     Indication: BURKHOLDERIA PSEUDOMALLEI INFECTION
     Dosage: UNK
  5. CEFTAZIDIME. [Suspect]
     Active Substance: CEFTAZIDIME
     Indication: BURKHOLDERIA PSEUDOMALLEI INFECTION
     Dosage: UNK
  6. CLARITHROMYCIN. [Suspect]
     Active Substance: CLARITHROMYCIN
     Indication: BURKHOLDERIA PSEUDOMALLEI INFECTION
     Dosage: 500 MG, 2X/DAY
     Route: 042

REACTIONS (5)
  - Drug ineffective [Fatal]
  - Acute respiratory distress syndrome [Not Recovered/Not Resolved]
  - Cardiac arrest [Fatal]
  - Sepsis [Fatal]
  - Acute kidney injury [Not Recovered/Not Resolved]
